FAERS Safety Report 6083798-9 (Version None)
Quarter: 2009Q1

REPORT INFORMATION
  Report Type: 
  Country: None (occurrence: None)
  Receive Date: 20090217
  Receipt Date: 20090217
  Transmission Date: 20090719
  Serious: Yes (Other)
  Sender: FDA-Public Use
  Company Number: None

PATIENT
  Age: 28 Year
  Sex: Female
  Weight: 109.7705 kg

DRUGS (3)
  1. TRAMADOL HCL [Suspect]
     Indication: ARTHRALGIA
     Dosage: 50 MG PO Q6HRS
     Route: 048
     Dates: start: 20080430, end: 20080503
  2. TRAMADOL HCL [Suspect]
     Indication: INFLAMMATION
     Dosage: 50 MG PO Q6HRS
     Route: 048
     Dates: start: 20080430, end: 20080503
  3. TRAMADOL HCL [Suspect]
     Indication: IRRITABLE BOWEL SYNDROME
     Dosage: 50 MG PO Q6HRS
     Route: 048
     Dates: start: 20080430, end: 20080503

REACTIONS (2)
  - DISTURBANCE IN ATTENTION [None]
  - VISION BLURRED [None]
